FAERS Safety Report 8472377-1 (Version None)
Quarter: 2012Q2

REPORT INFORMATION
  Report Type: 
  Country: None (occurrence: None)
  Receive Date: 20120323
  Receipt Date: 20111208
  Transmission Date: 20120825
  Serious: Yes (Hospitalization, Other)
  Sender: FDA-Public Use
  Company Number: 163-21880-11103136

PATIENT
  Age: 82 Year
  Sex: Female

DRUGS (5)
  1. LOSARTAN POTASSIUM [Concomitant]
  2. DOCUSATE (DOCUSATE) [Concomitant]
  3. REVLIMID [Suspect]
  4. REVLIMID [Suspect]
     Indication: MULTIPLE MYELOMA
     Dosage: 10 MG, DAILY, X 21D/28D, PO
     Route: 048
     Dates: start: 20110404, end: 20110409
  5. HYDROCHLOROTHIAZIDE [Concomitant]

REACTIONS (4)
  - SYNCOPE [None]
  - URINARY TRACT INFECTION [None]
  - FALL [None]
  - RENAL FAILURE ACUTE [None]
